FAERS Safety Report 12832513 (Version 1)
Quarter: 2016Q4

REPORT INFORMATION
  Report Type: Spontaneous
  Country: US (occurrence: US)
  Receive Date: 20161010
  Receipt Date: 20161010
  Transmission Date: 20170207
  Serious: No
  Sender: FDA-Public Use
  Company Number: US-JAZZ-2016-US-013042

PATIENT
  Sex: Female

DRUGS (36)
  1. FLUCONAZOLE. [Concomitant]
     Active Substance: FLUCONAZOLE
  2. ACYCLOVIR. [Concomitant]
     Active Substance: ACYCLOVIR
  3. RHODIOLA [Concomitant]
     Active Substance: HERBALS
  4. AMITRIPTYLINE HCL [Concomitant]
     Active Substance: AMITRIPTYLINE
  5. BUPROPION HCL [Concomitant]
     Active Substance: BUPROPION HYDROCHLORIDE
  6. BOTOX [Concomitant]
     Active Substance: ONABOTULINUMTOXINA
  7. CALCI-CHEW [Concomitant]
  8. MUPIROCIN. [Concomitant]
     Active Substance: MUPIROCIN
  9. BIOTIN [Concomitant]
     Active Substance: BIOTIN
  10. VENLAFAXINE HCL [Concomitant]
     Active Substance: VENLAFAXINE HYDROCHLORIDE
  11. PHENAZOPYRIDINE. [Concomitant]
     Active Substance: PHENAZOPYRIDINE
  12. DIAZEPAM. [Concomitant]
     Active Substance: DIAZEPAM
  13. SYNTHROID [Concomitant]
     Active Substance: LEVOTHYROXINE SODIUM
  14. RESTASIS [Concomitant]
     Active Substance: CYCLOSPORINE
  15. AMBIEN [Concomitant]
     Active Substance: ZOLPIDEM TARTRATE
  16. MAGNESIUM OXIDE. [Concomitant]
     Active Substance: MAGNESIUM OXIDE
  17. ROPINIROLE HCL [Concomitant]
     Active Substance: ROPINIROLE HYDROCHLORIDE
  18. FOLIC ACID. [Concomitant]
     Active Substance: FOLIC ACID
  19. RED CLOVER [Concomitant]
     Active Substance: RED CLOVER
  20. VITAMIN D3 [Concomitant]
     Active Substance: CHOLECALCIFEROL
  21. GRAPEFRUIT. [Concomitant]
     Active Substance: GRAPEFRUIT
  22. BACLOFEN. [Concomitant]
     Active Substance: BACLOFEN
  23. VITAMIN B COMPLEX [Concomitant]
     Active Substance: CYANOCOBALAMIN\DEXPANTHENOL\NIACINAMIDE\PYRIDOXINE HYDROCHLORIDE\RIBOFLAVIN 5^-PHOSPHATE SODIUM\THIAMINE HYDROCHLORIDE\VITAMIN B COMPLEX
  24. CLONAZEPAM. [Concomitant]
     Active Substance: CLONAZEPAM
  25. CYCLOBENZAPRINE [Concomitant]
     Active Substance: CYCLOBENZAPRINE
  26. ESTRADIOL. [Concomitant]
     Active Substance: ESTRADIOL
  27. XYREM [Suspect]
     Active Substance: SODIUM OXYBATE
     Indication: INSOMNIA
     Dosage: 4.5 G, BID
     Route: 048
     Dates: start: 201512
  28. DOXYCYCLINE HYCLATE. [Concomitant]
     Active Substance: DOXYCYCLINE HYCLATE
  29. FUROSEMIDE. [Concomitant]
     Active Substance: FUROSEMIDE
  30. NADOLOL. [Concomitant]
     Active Substance: NADOLOL
  31. VITAMIN D [Concomitant]
     Active Substance: CHOLECALCIFEROL
  32. ONDANSETRON HCL [Concomitant]
     Active Substance: ONDANSETRON HYDROCHLORIDE
  33. VITAMIN D2 [Concomitant]
     Active Substance: ERGOCALCIFEROL
  34. ONE DAILY FOR MEN [Concomitant]
  35. TOPIRAMATE. [Concomitant]
     Active Substance: TOPIRAMATE
  36. CETIRIZINE HCL [Concomitant]
     Active Substance: CETIRIZINE HYDROCHLORIDE

REACTIONS (2)
  - Pre-existing condition improved [Unknown]
  - Therapeutic response unexpected [Unknown]
